FAERS Safety Report 9230274 (Version 1)
Quarter: 2013Q2

REPORT INFORMATION
  Report Type: Spontaneous
  Country: US (occurrence: None)
  Receive Date: 20130411
  Receipt Date: 20130411
  Transmission Date: 20140414
  Serious: Yes (Hospitalization)
  Sender: FDA-Public Use
  Company Number: 2013/086

PATIENT
  Age: 4 Year
  Sex: Female

DRUGS (3)
  1. VALPROIC ACID [Suspect]
     Indication: PARTIAL SEIZURES
  2. LACOSAMIDE [Suspect]
     Indication: PARTIAL SEIZURES
  3. OXCARBAZEPINE [Concomitant]

REACTIONS (12)
  - Decreased appetite [None]
  - Dizziness [None]
  - Gait disturbance [None]
  - Somnolence [None]
  - Convulsion [None]
  - Pyrexia [None]
  - Anticonvulsant drug level increased [None]
  - Leukopenia [None]
  - Thrombocytopenia [None]
  - Encephalopathy [None]
  - Bone marrow failure [None]
  - Toxicity to various agents [None]
